FAERS Safety Report 10275354 (Version 1)
Quarter: 2014Q2

REPORT INFORMATION
  Report Type: Spontaneous
  Country: US (occurrence: None)
  Receive Date: 20140630
  Receipt Date: 20140630
  Transmission Date: 20141212
  Serious: No
  Sender: FDA-Public Use
  Company Number: None

PATIENT
  Age: 70 Year
  Sex: Female

DRUGS (1)
  1. XELJANZ 5MG PFIZER [Suspect]
     Indication: RHEUMATOID ARTHRITIS
     Dosage: 1 TABLET, BID, ORAL
     Route: 048

REACTIONS (1)
  - Weight increased [None]
